FAERS Safety Report 15451317 (Version 1)
Quarter: 2018Q3

REPORT INFORMATION
  Report Type: Spontaneous
  Country: US (occurrence: US)
  Receive Date: 20180927
  Receipt Date: 20180927
  Transmission Date: 20181010
  Serious: Yes (Other)
  Sender: FDA-Public Use
  Company Number: None

PATIENT
  Age: 31 Year
  Sex: Female
  Weight: 56.25 kg

DRUGS (1)
  1. ISOTRETINOIN CAPSULE 30 MG [Suspect]
     Active Substance: ISOTRETINOIN

REACTIONS (1)
  - Sacroiliitis [None]

NARRATIVE: CASE EVENT DATE: 20180925
